FAERS Safety Report 20298547 (Version 1)
Quarter: 2022Q1

REPORT INFORMATION
  Report Type: Spontaneous
  Country: US (occurrence: None)
  Receive Date: 20220104
  Receipt Date: 20220104
  Transmission Date: 20220424
  Serious: Yes (Hospitalization)
  Sender: FDA-Public Use
  Company Number: None

PATIENT
  Age: 76 Year
  Sex: Male
  Weight: 81 kg

DRUGS (12)
  1. REGEN-COV [Suspect]
     Active Substance: CASIRIVIMAB\IMDEVIMAB
     Indication: COVID-19
  2. VITAMINS [Concomitant]
     Active Substance: VITAMINS
  3. SAL PALMETO [Concomitant]
  4. PALMAGRANITE [Concomitant]
  5. VITAMIN D [Concomitant]
     Active Substance: VITAMIN D NOS
  6. K3 [Concomitant]
  7. ZINC [Concomitant]
     Active Substance: ZINC
  8. MAGNESIUM [Concomitant]
     Active Substance: MAGNESIUM
  9. LUTEIN [Concomitant]
     Active Substance: LUTEIN
  10. GRAPSEED EXTRACT [Concomitant]
  11. COENZYME Q10 [Concomitant]
     Active Substance: DIETARY SUPPLEMENT\UBIDECARENONE
  12. FISH OIL [Concomitant]

REACTIONS (4)
  - Pyrexia [None]
  - Incoherent [None]
  - Muscle spasticity [None]
  - Fall [None]

NARRATIVE: CASE EVENT DATE: 20211223
